FAERS Safety Report 4915431-0 (Version None)
Quarter: 2006Q1

REPORT INFORMATION
  Report Type: 
  Country: None (occurrence: None)
  Receive Date: 20060217
  Receipt Date: 20050823
  Transmission Date: 20060701
  Serious: Yes (Hospitalization, Disabling)
  Sender: FDA-Public Use
  Company Number: US-MERCK-0508USA03917

PATIENT
  Age: 63 Year
  Sex: Male
  Weight: 82 kg

DRUGS (13)
  1. VIOXX [Suspect]
     Indication: ARTHRITIS
     Route: 048
     Dates: start: 20040428, end: 20040904
  2. RANITIDINE [Concomitant]
     Route: 065
  3. AVALIDE [Concomitant]
     Route: 065
  4. METFORMIN [Concomitant]
     Indication: NEUROPATHY
     Route: 065
  5. LOTENSIN [Concomitant]
     Route: 065
  6. NORTRIPTYLINE [Concomitant]
     Route: 065
  7. ACETAMINOPHEN AND PROPOXYPHENE NAPSYLATE [Concomitant]
     Route: 065
  8. DOXEPIN HYDROCHLORIDE [Concomitant]
     Route: 065
  9. ZITHROMAX [Concomitant]
     Route: 065
  10. NABUMETONE [Concomitant]
     Route: 065
  11. ADVIL [Concomitant]
     Route: 065
  12. TYLENOL [Concomitant]
     Route: 065
  13. ZANTAC [Concomitant]
     Route: 065

REACTIONS (4)
  - ACUTE CORONARY SYNDROME [None]
  - ANGINA UNSTABLE [None]
  - CARDIAC DISORDER [None]
  - MYOCARDIAL INFARCTION [None]
